FAERS Safety Report 6541270-3 (Version None)
Quarter: 2010Q1

REPORT INFORMATION
  Report Type: 
  Country: None (occurrence: None)
  Receive Date: 20100118
  Receipt Date: 20100111
  Transmission Date: 20100710
  Serious: No
  Sender: FDA-Public Use
  Company Number: US-CELGENEUS-163-21880-09121100

PATIENT
  Sex: Male

DRUGS (4)
  1. REVLIMID [Suspect]
     Indication: MULTIPLE MYELOMA
     Route: 048
     Dates: start: 20090901
  2. REVLIMID [Suspect]
     Route: 048
     Dates: start: 20090701
  3. REVLIMID [Suspect]
     Dosage: 25-10MG
     Route: 048
     Dates: start: 20090501
  4. REVLIMID [Suspect]
     Route: 048
     Dates: start: 20080601, end: 20080101

REACTIONS (1)
  - DISEASE PROGRESSION [None]
